FAERS Safety Report 24603913 (Version 2)
Quarter: 2024Q4

REPORT INFORMATION
  Report Type: Spontaneous
  Country: US (occurrence: US)
  Receive Date: 20241111
  Receipt Date: 20241026
  Transmission Date: 20250115
  Serious: No
  Sender: TARO
  Company Number: US-TARO PHARMACEUTICALS USA INC.-2024TAR01076

PATIENT
  Age: 15 Year
  Sex: Female

DRUGS (1)
  1. ADAPALENE [Suspect]
     Active Substance: ADAPALENE
     Indication: Acne
     Dosage: UNK., TO FACE
     Route: 061

REACTIONS (2)
  - Sensitive skin [Recovering/Resolving]
  - Skin burning sensation [Recovering/Resolving]
